FAERS Safety Report 8577544-4 (Version None)
Quarter: 2012Q3

REPORT INFORMATION
  Report Type: 
  Country: None (occurrence: None)
  Receive Date: 20120807
  Receipt Date: 20120802
  Transmission Date: 20120928
  Serious: Yes (Life-Threatening)
  Sender: FDA-Public Use
  Company Number: US-BAYER-2012-079178

PATIENT
  Age: 27 Year
  Sex: Female
  Weight: 87.4 kg

DRUGS (3)
  1. ALEVE (CAPLET) [Suspect]
     Indication: SELF INJURIOUS BEHAVIOUR
     Route: 048
  2. ETHANOL [Concomitant]
  3. MIDOL PM CAPLETS [Suspect]
     Indication: SELF INJURIOUS BEHAVIOUR
     Dosage: DAILY DOSE 60 DF
     Route: 048

REACTIONS (1)
  - SEDATION [None]
